FAERS Safety Report 9732733 (Version 1)
Quarter: 2013Q4

REPORT INFORMATION
  Report Type: Spontaneous
  Country: US (occurrence: US)
  Receive Date: 20131204
  Receipt Date: 20131204
  Transmission Date: 20140711
  Serious: Yes (Other)
  Sender: FDA-Public Use
  Company Number: US-GLAXOSMITHKLINE-A1051467A

PATIENT
  Age: 63 Year
  Sex: Female

DRUGS (4)
  1. VOTRIENT [Suspect]
     Indication: RENAL CELL CARCINOMA
     Dosage: 600MG UNKNOWN
     Route: 048
     Dates: start: 20131009
  2. SYNTHROID [Concomitant]
  3. LISINOPRIL [Concomitant]
  4. PRILOSEC [Concomitant]

REACTIONS (3)
  - Pulmonary fibrosis [Unknown]
  - Pneumonitis [Unknown]
  - Cough [Unknown]
